FAERS Safety Report 4821244-0 (Version None)
Quarter: 2005Q4

REPORT INFORMATION
  Report Type: 
  Country: None (occurrence: None)
  Receive Date: 20051107
  Receipt Date: 20051024
  Transmission Date: 20060501
  Serious: Yes (Death, Other)
  Sender: FDA-Public Use
  Company Number: FR-BRISTOL-MYERS SQUIBB COMPANY-13157128

PATIENT
  Age: 81 Year
  Sex: Female

DRUGS (5)
  1. FUNGIZONE [Suspect]
  2. ALLOPURINOL [Suspect]
  3. EXACOR [Suspect]
  4. AMIODARONE HCL [Suspect]
  5. PREVISCAN [Concomitant]

REACTIONS (4)
  - CARDIAC ARREST [None]
  - HEPATIC FAILURE [None]
  - LACTIC ACIDOSIS [None]
  - RENAL FAILURE [None]
